FAERS Safety Report 10576421 (Version 2)
Quarter: 2014Q4

REPORT INFORMATION
  Report Type: Report from Study
  Country: BR (occurrence: BR)
  Receive Date: 20141111
  Receipt Date: 20141111
  Transmission Date: 20150529
  Serious: Yes (Other)
  Sender: FDA-Public Use
  Company Number: BR-ELI_LILLY_AND_COMPANY-BR201406008732

PATIENT
  Age: 60 Year
  Sex: Female

DRUGS (5)
  1. HUMAN INSULIN [Suspect]
     Active Substance: INSULIN HUMAN
     Indication: TYPE 2 DIABETES MELLITUS
     Dosage: 50 IU, EACH MORNING
     Route: 065
  2. GALVUS [Concomitant]
     Active Substance: VILDAGLIPTIN
     Dosage: UNK, UNKNOWN
     Route: 065
  3. HUMAN INSULIN [Suspect]
     Active Substance: INSULIN HUMAN
     Dosage: 20 IU, QD
     Route: 065
  4. HUMAN INSULIN [Suspect]
     Active Substance: INSULIN HUMAN
     Dosage: 60 IU, EACH MORNING
     Route: 065
  5. HUMAN INSULIN [Suspect]
     Active Substance: INSULIN HUMAN
     Dosage: 40 IU, EACH EVENING

REACTIONS (14)
  - Weight decreased [Not Recovered/Not Resolved]
  - Eating disorder [Unknown]
  - Incorrect dose administered [Unknown]
  - Blood glucose increased [Unknown]
  - Nephrolithiasis [Unknown]
  - Abdominal distension [Recovering/Resolving]
  - Incision site complication [Not Recovered/Not Resolved]
  - Constipation [Recovering/Resolving]
  - Hepatic steatosis [Unknown]
  - Fibroma [Recovering/Resolving]
  - Visual impairment [Unknown]
  - Incision site haematoma [Not Recovered/Not Resolved]
  - Incision site pain [Not Recovered/Not Resolved]
  - Injection site nodule [Not Recovered/Not Resolved]

NARRATIVE: CASE EVENT DATE: 201406
